FAERS Safety Report 18729284 (Version 1)
Quarter: 2021Q1

REPORT INFORMATION
  Report Type: Spontaneous
  Country: US (occurrence: US)
  Receive Date: 20210111
  Receipt Date: 20210111
  Transmission Date: 20210419
  Serious: Yes (Death)
  Sender: FDA-Public Use
  Company Number: None

PATIENT
  Age: 34 Year
  Sex: Male

DRUGS (1)
  1. OXALIPLATIN SDC 100MG/20ML [Suspect]
     Active Substance: OXALIPLATIN
     Dosage: ?          OTHER FREQUENCY:OTHER;?
     Route: 040
     Dates: start: 20190901

REACTIONS (1)
  - Death [None]

NARRATIVE: CASE EVENT DATE: 20201231
